FAERS Safety Report 8940066 (Version 4)
Quarter: 2013Q4

REPORT INFORMATION
  Report Type: Report from Study
  Country: PL (occurrence: PL)
  Receive Date: 20121203
  Receipt Date: 20131202
  Transmission Date: 20140711
  Serious: Yes (Hospitalization)
  Sender: FDA-Public Use
  Company Number: PL-EISAI INC-E7389-02629-CLI-PL

PATIENT
  Age: 42 Year
  Sex: Male
  Weight: 70 kg

DRUGS (7)
  1. E7389 (BOLD) [Suspect]
     Indication: NON-SMALL CELL LUNG CANCER
     Route: 041
     Dates: start: 20120530, end: 20120620
  2. E7389 (BOLD) [Suspect]
     Route: 041
     Dates: start: 20120627, end: 20120704
  3. PARACETAMOL [Concomitant]
     Route: 048
  4. THIOCODIN [Concomitant]
     Dosage: 2 TABLET
  5. ACC [Concomitant]
  6. BISOCARD [Concomitant]
     Route: 048
  7. PABI-DEXAMETHASONE [Concomitant]
     Route: 048

REACTIONS (1)
  - Pneumonia [Recovered/Resolved]
